FAERS Safety Report 17318137 (Version 1)
Quarter: 2020Q3

REPORT INFORMATION
  Report Type: Spontaneous
  Country: CH (occurrence: CH)
  Receive Date: 20200124
  Receipt Date: 20200124
  Transmission Date: 20201104
  Serious: Yes (Other)
  Sender: FDA-Public Use
  Company Number: CH-009507513-2001CHE006402

PATIENT

DRUGS (10)
  1. SANDOSTATIN [Suspect]
     Active Substance: OCTREOTIDE ACETATE
     Indication: CARCINOID SYNDROME
     Dosage: UNK
  2. SANDOSTATIN [Suspect]
     Active Substance: OCTREOTIDE ACETATE
     Indication: CARCINOID TUMOUR
  3. XELODA [Suspect]
     Active Substance: CAPECITABINE
     Indication: CARCINOID TUMOUR
  4. EVEROLIMUS. [Suspect]
     Active Substance: EVEROLIMUS
     Indication: CARCINOID SYNDROME
     Dosage: UNK
  5. TEMODAL [Suspect]
     Active Substance: TEMOZOLOMIDE
     Indication: CARCINOID SYNDROME
     Dosage: UNK
  6. EDOTREOTIDE. [Suspect]
     Active Substance: EDOTREOTIDE
     Indication: CARCINOID TUMOUR
     Dosage: UNK
  7. XELODA [Suspect]
     Active Substance: CAPECITABINE
     Indication: CARCINOID SYNDROME
     Dosage: UNK
  8. EDOTREOTIDE. [Suspect]
     Active Substance: EDOTREOTIDE
     Indication: CARCINOID SYNDROME
  9. EVEROLIMUS. [Suspect]
     Active Substance: EVEROLIMUS
     Indication: CARCINOID TUMOUR
  10. TEMODAL [Suspect]
     Active Substance: TEMOZOLOMIDE
     Indication: CARCINOID TUMOUR

REACTIONS (4)
  - Metastases to liver [Unknown]
  - Metastatic carcinoid tumour [Unknown]
  - Metastases to bone [Unknown]
  - Product use in unapproved indication [Unknown]
